FAERS Safety Report 23964135 (Version 1)
Quarter: 2024Q2

REPORT INFORMATION
  Report Type: Spontaneous
  Country: US (occurrence: None)
  Receive Date: 20240611
  Receipt Date: 20240611
  Transmission Date: 20240716
  Serious: Yes (Hospitalization)
  Sender: FDA-Public Use
  Company Number: None

PATIENT
  Age: 80 Year
  Sex: Male

DRUGS (1)
  1. HYDROXYUREA [Suspect]
     Active Substance: HYDROXYUREA
     Indication: Polycythaemia vera
     Dosage: 1000 MG DAILY ORAL
     Route: 048
     Dates: start: 20150515

REACTIONS (3)
  - Fall [None]
  - Traumatic lung injury [None]
  - Pneumothorax [None]

NARRATIVE: CASE EVENT DATE: 20240603
